FAERS Safety Report 13411916 (Version 1)
Quarter: 2017Q2

REPORT INFORMATION
  Report Type: Spontaneous
  Country: US (occurrence: US)
  Receive Date: 20170406
  Receipt Date: 20170406
  Transmission Date: 20170830
  Serious: No
  Sender: FDA-Public Use
  Company Number: US-AMGEN-USASP2017048819

PATIENT
  Sex: Female
  Weight: 47.17 kg

DRUGS (2)
  1. ENBREL [Suspect]
     Active Substance: ETANERCEPT
     Indication: PSORIATIC ARTHROPATHY
     Dosage: 25 MG, 2 TIMES/WK
     Route: 058
  2. FORTEO [Concomitant]
     Active Substance: TERIPARATIDE
     Dosage: UNK

REACTIONS (1)
  - Injection site pain [Unknown]
